FAERS Safety Report 9357886 (Version 2)
Quarter: 2013Q3

REPORT INFORMATION
  Report Type: Spontaneous
  Country: US (occurrence: US)
  Receive Date: 20130620
  Receipt Date: 20130708
  Transmission Date: 20140515
  Serious: Yes (Death, Hospitalization)
  Sender: FDA-Public Use
  Company Number: US-BRISTOL-MYERS SQUIBB COMPANY-19008481

PATIENT
  Age: 38 Year
  Sex: Male

DRUGS (2)
  1. BARACLUDE [Suspect]
     Indication: CHRONIC HEPATITIS B
     Route: 048
     Dates: start: 20130311, end: 20130403
  2. SORAFENIB [Concomitant]
     Route: 048
     Dates: start: 20130311, end: 20130403

REACTIONS (1)
  - Hepatic failure [Fatal]
